FAERS Safety Report 4782098-4 (Version None)
Quarter: 2005Q3

REPORT INFORMATION
  Report Type: 
  Country: None (occurrence: None)
  Receive Date: 20050928
  Receipt Date: 20050916
  Transmission Date: 20060218
  Serious: Yes (Death, Hospitalization)
  Sender: FDA-Public Use
  Company Number: NL-MERCK-0509NLD00023

PATIENT
  Age: 25 Year
  Sex: Female

DRUGS (6)
  1. COSMOGEN [Suspect]
     Indication: CHORIOCARCINOMA
     Route: 065
  2. METHOTREXATE [Concomitant]
     Indication: CHORIOCARCINOMA
     Route: 065
  3. ETOPOSIDE [Concomitant]
     Indication: CHORIOCARCINOMA
     Route: 065
  4. CYCLOPHOSPHAMIDE [Concomitant]
     Indication: CHORIOCARCINOMA
     Route: 065
  5. VINCRISTINE SULFATE [Concomitant]
     Indication: CHORIOCARCINOMA
     Route: 065
  6. CISPLATIN [Concomitant]
     Indication: CHORIOCARCINOMA
     Route: 065

REACTIONS (25)
  - ABDOMINAL PAIN UPPER [None]
  - ALANINE AMINOTRANSFERASE INCREASED [None]
  - ANAEMIA [None]
  - ASCITES [None]
  - ASPARTATE AMINOTRANSFERASE INCREASED [None]
  - CARDIO-RESPIRATORY ARREST [None]
  - CIRCULATORY COLLAPSE [None]
  - FATIGUE [None]
  - GAMMA-GLUTAMYLTRANSFERASE INCREASED [None]
  - GESTATIONAL TROPHOBLASTIC TUMOUR [None]
  - HEPATIC HAEMORRHAGE [None]
  - HEPATOMEGALY [None]
  - INTRA-ABDOMINAL HAEMORRHAGE [None]
  - LIVER DISORDER [None]
  - METASTASES TO LIVER [None]
  - NAUSEA [None]
  - OVARIAN ENLARGEMENT [None]
  - OVARIAN MASS [None]
  - PYREXIA [None]
  - RECTAL HAEMORRHAGE [None]
  - RESPIRATORY FAILURE [None]
  - SHOCK [None]
  - SHOCK HAEMORRHAGIC [None]
  - SINUS TACHYCARDIA [None]
  - TERATOMA [None]
